FAERS Safety Report 14852058 (Version 1)
Quarter: 2018Q2

REPORT INFORMATION
  Report Type: Other
  Country: IN (occurrence: IN)
  Receive Date: 20180507
  Receipt Date: 20180507
  Transmission Date: 20180711
  Serious: Yes (Hospitalization)
  Sender: FDA-Public Use
  Company Number: IN-AJANTA PHARMA USA INC.-2047296

PATIENT
  Age: 47 Year
  Sex: Female

DRUGS (3)
  1. DIVALPROATE [Concomitant]
     Active Substance: DIVALPROEX SODIUM
  2. ARIPIPRAZOLE. [Suspect]
     Active Substance: ARIPIPRAZOLE
  3. RISPERIDONE. [Suspect]
     Active Substance: RISPERIDONE
     Indication: BIPOLAR I DISORDER

REACTIONS (1)
  - Rabbit syndrome [Recovered/Resolved]
